FAERS Safety Report 9495963 (Version 1)
Quarter: 2013Q3

REPORT INFORMATION
  Report Type: Spontaneous
  Country: US (occurrence: US)
  Receive Date: 20130904
  Receipt Date: 20130904
  Transmission Date: 20140515
  Serious: Yes (Death, Disabling, Other)
  Sender: FDA-Public Use
  Company Number: US-PAR PHARMACEUTICAL, INC-2013SCPR006126

PATIENT
  Sex: 0

DRUGS (2)
  1. METOCLOPRAMIDE [Suspect]
     Indication: DIABETIC GASTROPARESIS
     Dosage: UNK UNK, / DAY
     Route: 048
     Dates: start: 200402, end: 20080904
  2. METOCLOPRAMIDE [Suspect]
     Dosage: UNK, UNKNOWN, FOR FEW WEEKS DURING EACH YEAR
     Route: 065
     Dates: start: 200203, end: 200905

REACTIONS (6)
  - Death [Fatal]
  - Hypoxic-ischaemic encephalopathy [Fatal]
  - Cardio-respiratory arrest [Fatal]
  - Pulseless electrical activity [Fatal]
  - Tardive dyskinesia [Not Recovered/Not Resolved]
  - Parkinsonism [Not Recovered/Not Resolved]
